FAERS Safety Report 8495524-4 (Version None)
Quarter: 2012Q3

REPORT INFORMATION
  Report Type: 
  Country: None (occurrence: None)
  Receive Date: 20120709
  Receipt Date: 20120626
  Transmission Date: 20120928
  Serious: Yes (Hospitalization)
  Sender: FDA-Public Use
  Company Number: FR-NOVOPROD-354951

PATIENT
  Age: 79 Year
  Sex: Female
  Weight: 70 kg

DRUGS (5)
  1. VICTOZA [Suspect]
     Indication: TYPE 2 DIABETES MELLITUS
     Dosage: UNK
     Route: 058
     Dates: start: 20110401
  2. DIAMICRON [Concomitant]
     Dosage: 60 MG, QD
     Route: 048
  3. SIMVASTATIN [Concomitant]
     Dosage: 20 MG, QD
     Route: 048
  4. ESCITALOPRAM [Concomitant]
     Dosage: 20 MG, QD
     Route: 048
  5. METFORMIN HCL [Concomitant]
     Dosage: 2550 MG, QD
     Route: 048

REACTIONS (2)
  - LOSS OF CONSCIOUSNESS [None]
  - WEIGHT DECREASED [None]
